FAERS Safety Report 6802589-1 (Version None)
Quarter: 2010Q2

REPORT INFORMATION
  Report Type: 
  Country: None (occurrence: None)
  Receive Date: 20100628
  Receipt Date: 20100621
  Transmission Date: 20101027
  Serious: Yes (Hospitalization, Other)
  Sender: FDA-Public Use
  Company Number: US-BAYER-201021856NA

PATIENT
  Age: 68 Year
  Sex: Female

DRUGS (5)
  1. BETASERON [Suspect]
     Indication: MULTIPLE SCLEROSIS
     Dates: start: 19900101, end: 20070101
  2. FOSAMAX [Concomitant]
  3. PREDNISONE [Concomitant]
  4. AVONEX [Concomitant]
  5. LISINOPRIL [Concomitant]

REACTIONS (6)
  - FALL [None]
  - FEMUR FRACTURE [None]
  - HYPERTENSION [None]
  - INJECTION SITE CELLULITIS [None]
  - INJECTION SITE NECROSIS [None]
  - STAPHYLOCOCCAL INFECTION [None]
